FAERS Safety Report 17489033 (Version 1)
Quarter: 2020Q1

REPORT INFORMATION
  Report Type: Spontaneous
  Country: US (occurrence: US)
  Receive Date: 20200303
  Receipt Date: 20200303
  Transmission Date: 20200409
  Serious: No
  Sender: FDA-Public Use
  Company Number: US-PERRIGO-19US005034

PATIENT
  Age: 39 Year
  Sex: Female
  Weight: 63.49 kg

DRUGS (2)
  1. NAPROXEN SODIUM. [Suspect]
     Active Substance: NAPROXEN SODIUM
     Indication: MIGRAINE
     Dosage: 440 MG, TWICE IN 2 HOURS
     Route: 048
     Dates: start: 20190417, end: 20190417
  2. ACETAMINOPHEN. [Concomitant]
     Active Substance: ACETAMINOPHEN
     Indication: MIGRAINE
     Dosage: 1000 MG
     Route: 065
     Dates: start: 20190117, end: 20190117

REACTIONS (1)
  - Off label use [Recovered/Resolved]

NARRATIVE: CASE EVENT DATE: 20190417
